FAERS Safety Report 14303718 (Version 6)
Quarter: 2018Q4

REPORT INFORMATION
  Report Type: Spontaneous
  Country: FR (occurrence: FR)
  Receive Date: 20171219
  Receipt Date: 20181214
  Transmission Date: 20190204
  Serious: Yes (Death, Hospitalization, Other)
  Sender: FDA-Public Use
  Company Number: FR-OTSUKA-DJ20083119

PATIENT
  Age: 56 Year
  Sex: Male

DRUGS (15)
  1. LOXAPAC [Suspect]
     Active Substance: LOXAPINE
     Indication: PSYCHOTIC DISORDER
     Dosage: 3 DF, TID (25 MG)
     Route: 065
     Dates: start: 20080703
  2. AMOXICILLIN TRIHYDRATE [Suspect]
     Active Substance: AMOXICILLIN
     Indication: LUNG DISORDER
     Dosage: 3 G, QD (1 G, TID)
     Route: 065
     Dates: start: 20080622, end: 20080630
  3. LEPTICUR [Suspect]
     Active Substance: TROPATEPINE HYDROCHLORIDE
     Indication: PSYCHOTIC DISORDER
     Dosage: 2 DF, BID (10 MG)
     Route: 048
     Dates: start: 20080621
  4. EFFERALGAN [Concomitant]
     Active Substance: ACETAMINOPHEN
     Indication: PRODUCT USED FOR UNKNOWN INDICATION
     Dosage: 500 MG, TID (500 MG 6 DAILY)
     Route: 048
     Dates: start: 20080622, end: 20080625
  5. KETOPROFEN. [Concomitant]
     Active Substance: KETOPROFEN
     Indication: PRODUCT USED FOR UNKNOWN INDICATION
     Dosage: UNK
     Route: 065
     Dates: start: 20080622, end: 20080626
  6. XANAX [Suspect]
     Active Substance: ALPRAZOLAM
     Indication: PSYCHOTIC DISORDER
     Dosage: 9 DF, QD (3 DF, TID (0.25 MG))
     Route: 048
     Dates: start: 20080718
  7. AMOXICILLIN CLAVULANIC ACID [Suspect]
     Active Substance: AMOXICILLIN\CLAVULANIC ACID
     Indication: LUNG DISORDER
     Dosage: 9 DF, QD (3 DF, TID (1 G))
     Route: 048
     Dates: start: 20080622, end: 20080630
  8. SOLIAN [Suspect]
     Active Substance: AMISULPRIDE
     Indication: PSYCHOTIC DISORDER
     Dosage: 50 MG, QD
     Route: 048
     Dates: start: 20080621
  9. VENTOLINE [Concomitant]
     Active Substance: ALBUTEROL
     Indication: PRODUCT USED FOR UNKNOWN INDICATION
     Dosage: 2 DF, TID
     Route: 065
     Dates: start: 20080629, end: 2008
  10. ABILIFY [Suspect]
     Active Substance: ARIPIPRAZOLE
     Indication: PSYCHOTIC DISORDER
     Dosage: 10 MG, QD
     Route: 048
     Dates: start: 20080715
  11. ATARAX [Suspect]
     Active Substance: HYDROXYZINE HYDROCHLORIDE
     Indication: PSYCHOTIC DISORDER
     Dosage: 1 DF, QD
     Route: 065
     Dates: start: 20080621
  12. TERCIAN [Suspect]
     Active Substance: CYAMEMAZINE
     Indication: PSYCHOTIC DISORDER
     Dosage: 2 DF, BID (50 MG)
     Route: 048
     Dates: start: 20080718
  13. AMOXICILLIN CLAVULANIC ACID [Suspect]
     Active Substance: AMOXICILLIN\CLAVULANIC ACID
     Indication: PNEUMONIA ASPIRATION
     Dosage: UNK
  14. TERCIAN [Suspect]
     Active Substance: CYAMEMAZINE
     Dosage: 25 MG, UNK
     Route: 065
  15. SPASFON LYOC [Concomitant]
     Active Substance: PHLOROGLUCINOL
     Indication: PRODUCT USED FOR UNKNOWN INDICATION
     Dosage: 2 DF, TID
     Route: 065
     Dates: start: 20080626, end: 2008

REACTIONS (7)
  - Acute kidney injury [Fatal]
  - Sepsis [Fatal]
  - Enterocolitis [Fatal]
  - Product use in unapproved indication [Unknown]
  - Diarrhoea infectious [Fatal]
  - Leukocytosis [Fatal]
  - Hyperleukocytosis [Fatal]

NARRATIVE: CASE EVENT DATE: 20080715
